FAERS Safety Report 13707410 (Version 1)
Quarter: 2017Q2

REPORT INFORMATION
  Report Type: Spontaneous
  Country: DE (occurrence: DE)
  Receive Date: 20170630
  Receipt Date: 20170630
  Transmission Date: 20170830
  Serious: Yes (Hospitalization, Congenital Anomaly)
  Sender: FDA-Public Use
  Company Number: DE-HERITAGE PHARMACEUTICALS-2017HTG00168

PATIENT
  Age: 1 Day
  Sex: Female
  Weight: 1.56 kg

DRUGS (2)
  1. PREDNISOLONE. [Concomitant]
     Active Substance: PREDNISOLONE
     Route: 064
  2. LEFLUNOMIDE. [Suspect]
     Active Substance: LEFLUNOMIDE
     Indication: RHEUMATOID ARTHRITIS
     Route: 064

REACTIONS (3)
  - Oesophageal atresia [Unknown]
  - Tracheo-oesophageal fistula [Unknown]
  - Foetal exposure during pregnancy [Recovered/Resolved]
